FAERS Safety Report 21402519 (Version 1)
Quarter: 2022Q4

REPORT INFORMATION
  Report Type: Spontaneous
  Country: US (occurrence: US)
  Receive Date: 20221003
  Receipt Date: 20221003
  Transmission Date: 20230113
  Serious: No
  Sender: FDA-Public Use
  Company Number: US-BAYER-2022A136453

PATIENT
  Age: 62 Year
  Sex: Female

DRUGS (1)
  1. MIRALAX [Suspect]
     Active Substance: POLYETHYLENE GLYCOL 3350
     Indication: Constipation
     Dosage: I USED THE MEASURING THE CUP AND FOLLOWING THE INSTRUCTIONS IN THE LABEL
     Route: 048
     Dates: start: 20220927, end: 20220930

REACTIONS (1)
  - Weight decreased [Unknown]
